FAERS Safety Report 7875444-6 (Version None)
Quarter: 2011Q4

REPORT INFORMATION
  Report Type: 
  Country: None (occurrence: None)
  Receive Date: 20111031
  Receipt Date: 20111018
  Transmission Date: 20120403
  Serious: Yes (Other)
  Sender: FDA-Public Use
  Company Number: PHEH2011US07236

PATIENT
  Sex: Female

DRUGS (2)
  1. TEGRETOL [Suspect]
     Indication: FACIAL PAIN
  2. CARBAMAZEPINE [Suspect]
     Indication: FACIAL PAIN

REACTIONS (1)
  - MULTIPLE SCLEROSIS [None]
